FAERS Safety Report 14592724 (Version 2)
Quarter: 2018Q3

REPORT INFORMATION
  Report Type: Report from Study
  Country: DE (occurrence: DE)
  Receive Date: 20180302
  Receipt Date: 20180919
  Transmission Date: 20181010
  Serious: Yes (Hospitalization)
  Sender: FDA-Public Use
  Company Number: DE-PFIZER INC-2018084335

PATIENT
  Age: 81 Year
  Sex: Female

DRUGS (7)
  1. TAZOBAC [Concomitant]
     Active Substance: PIPERACILLIN SODIUM\TAZOBACTAM SODIUM
     Dosage: 4.5 MG, UNK (DOSAGE FORM: UNSPECIFIED)
     Route: 065
  2. SIMPONI [Suspect]
     Active Substance: GOLIMUMAB
     Indication: RHEUMATOID ARTHRITIS
     Dosage: 50 MG, EVERY 4 WEEKS
     Route: 058
     Dates: start: 20150101
  3. AVALOX [Concomitant]
     Active Substance: MOXIFLOXACIN HYDROCHLORIDE
     Dosage: 400 MG, UNK (FORMULATION: UNSPECIFIED)
     Route: 065
  4. NO SUBJECT DRUG [Suspect]
     Active Substance: UNSPECIFIED INGREDIENT
     Dosage: NO DOSE GIVEN
  5. CEFUROXIME. [Concomitant]
     Active Substance: CEFUROXIME
     Dosage: 1.5 MG, UNK (DOSAGE FORM: UNSPECIFIED)
     Route: 065
  6. METHOTREXATE SODIUM. [Suspect]
     Active Substance: METHOTREXATE SODIUM
     Indication: RHEUMATOID ARTHRITIS
     Dosage: 5 MG, WEEKLY (DOSIS FORM: UNSPECIFIED)
     Route: 065
     Dates: start: 20150101
  7. METRONIDAZOLE. [Concomitant]
     Active Substance: METRONIDAZOLE
     Dosage: 500 MG, UNK (DOSAGE FORM: UNSPECIFIED)
     Route: 065

REACTIONS (4)
  - Mechanical ileus [Recovered/Resolved]
  - Colonic abscess [Recovered/Resolved]
  - Abdominal adhesions [Recovered/Resolved]
  - Diverticular perforation [Recovered/Resolved]

NARRATIVE: CASE EVENT DATE: 20170808
